FAERS Safety Report 7065218-0 (Version None)
Quarter: 2010Q4

REPORT INFORMATION
  Report Type: 
  Country: None (occurrence: None)
  Receive Date: 20101022
  Receipt Date: 20101022
  Transmission Date: 20110411
  Serious: Yes (Disabling)
  Sender: FDA-Public Use
  Company Number: None

PATIENT
  Age: 36 Year
  Sex: Male
  Weight: 78.0187 kg

DRUGS (2)
  1. TRANXENE [Suspect]
     Indication: MUSCLE RELAXANT THERAPY
     Dosage: 7.5MG 2X DAILY
  2. TRANXENE [Suspect]
     Indication: PALPITATIONS
     Dosage: 7.5MG 2X DAILY

REACTIONS (6)
  - DIZZINESS [None]
  - ECONOMIC PROBLEM [None]
  - INSOMNIA [None]
  - MUSCULAR WEAKNESS [None]
  - QUALITY OF LIFE DECREASED [None]
  - VISUAL IMPAIRMENT [None]
